FAERS Safety Report 5701345-5 (Version None)
Quarter: 2008Q2

REPORT INFORMATION
  Report Type: 
  Country: None (occurrence: None)
  Receive Date: 20080410
  Receipt Date: 20080328
  Transmission Date: 20081010
  Serious: Yes (Hospitalization)
  Sender: FDA-Public Use
  Company Number: JP-PFIZER INC-2008030659

PATIENT
  Age: 80 Year
  Sex: Female

DRUGS (4)
  1. MIGLITOL TABLET [Suspect]
     Indication: DIABETES MELLITUS
     Route: 048
     Dates: start: 20070815, end: 20080318
  2. EUGLUCON [Suspect]
     Indication: DIABETES MELLITUS
     Route: 048
  3. BLOPRESS [Concomitant]
     Route: 048
  4. LOCHOL [Concomitant]
     Route: 048

REACTIONS (1)
  - HYPOGLYCAEMIA [None]
